FAERS Safety Report 19024460 (Version 5)
Quarter: 2021Q3

REPORT INFORMATION
  Report Type: Spontaneous
  Country: CA (occurrence: CA)
  Receive Date: 20210318
  Receipt Date: 20210714
  Transmission Date: 20211014
  Serious: Yes (Other)
  Sender: FDA-Public Use
  Company Number: CA-CELLTRION INC.-2021CA003493

PATIENT

DRUGS (19)
  1. LEFLUNOMIDE. [Concomitant]
     Active Substance: LEFLUNOMIDE
     Dosage: 20 MG
     Route: 048
  2. METOPROLOL. [Concomitant]
     Active Substance: METOPROLOL
     Dosage: 25 MG
     Route: 048
  3. INFLECTRA [Suspect]
     Active Substance: INFLIXIMAB-DYYB
     Dosage: 300 MG, AT  2, 6 WEEKS THEN EVERY 8 WEEKS
     Route: 042
     Dates: start: 20210304
  4. NICOTINE. [Concomitant]
     Active Substance: NICOTINE
     Dosage: UNK MG (PATCH)
  5. TAMOXIFEN CITRATE. [Concomitant]
     Active Substance: TAMOXIFEN CITRATE
     Dosage: 20 MG
     Route: 048
  6. OMEGA 3 FISH OIL [FISH OIL] [Concomitant]
     Dosage: UNK
  7. PREDNISONE. [Concomitant]
     Active Substance: PREDNISONE
     Dosage: 45 MG, DAILY
     Route: 065
  8. SOLU?MEDROL [Concomitant]
     Active Substance: METHYLPREDNISOLONE SODIUM SUCCINATE
     Dosage: 40 MG, DAILY
     Route: 042
  9. ANTIOXIDANT FORMULA [Concomitant]
     Dosage: UNK
  10. METHOTREXATE. [Concomitant]
     Active Substance: METHOTREXATE
     Dosage: 1 DF
     Route: 065
  11. WELLBUTRIN XL [Concomitant]
     Active Substance: BUPROPION HYDROCHLORIDE
     Dosage: 300 MG
     Route: 048
  12. INFLECTRA [Suspect]
     Active Substance: INFLIXIMAB-DYYB
     Indication: CROHN^S DISEASE
     Dosage: 5 MG/KG, FIRST DOSE RECEIVED IN HOSPITAL
     Route: 042
     Dates: start: 20210218, end: 20210218
  13. INFLECTRA [Suspect]
     Active Substance: INFLIXIMAB-DYYB
     Dosage: 300 MG, AT  2, 6 WEEKS THEN EVERY 8 WEEKS
     Dates: start: 20210329
  14. INFLECTRA [Suspect]
     Active Substance: INFLIXIMAB-DYYB
     Dosage: 300 MG, AT 2, 6 WEEKS THEN EVERY 8 WEEKS
     Dates: start: 20210604
  15. INFLECTRA [Suspect]
     Active Substance: INFLIXIMAB-DYYB
     Dosage: 300 MG, AT  2, 6 WEEKS THEN EVERY 8 WEEKS
     Dates: start: 20210604
  16. ASPIRIN EC [Concomitant]
     Active Substance: ASPIRIN
     Dosage: 81 MG
     Route: 048
  17. NICOTINE. [Concomitant]
     Active Substance: NICOTINE
     Dosage: 7 MG, DOSAGE FREQUENCY UNKNOWN (PATCH)
     Route: 062
  18. PREDNISONE. [Concomitant]
     Active Substance: PREDNISONE
     Dosage: 5 MG, 1X/DAY (TAPERING)
  19. FERROUS FUMARATE [Concomitant]
     Active Substance: FERROUS FUMARATE
     Dosage: UNK

REACTIONS (3)
  - Arthralgia [Unknown]
  - Rectal haemorrhage [Recovering/Resolving]
  - Condition aggravated [Unknown]

NARRATIVE: CASE EVENT DATE: 202102
